FAERS Safety Report 23965593 (Version 1)
Quarter: 2024Q2

REPORT INFORMATION
  Report Type: Other
  Country: GB (occurrence: None)
  Receive Date: 20240612
  Receipt Date: 20240612
  Transmission Date: 20240716
  Serious: Yes (Other)
  Sender: FDA-Public Use
  Company Number: GB-ROCHE-3580143

PATIENT

DRUGS (6)
  1. BEVACIZUMAB [Suspect]
     Active Substance: BEVACIZUMAB
     Indication: Pleural mesothelioma
     Route: 065
  2. PEMBROLIZUMAB [Suspect]
     Active Substance: PEMBROLIZUMAB
     Indication: Pleural mesothelioma
     Route: 065
  3. NIVOLUMAB [Suspect]
     Active Substance: NIVOLUMAB
     Indication: Pleural mesothelioma
     Route: 065
  4. CISPLATIN [Suspect]
     Active Substance: CISPLATIN
     Indication: Pleural mesothelioma
     Route: 065
  5. CARBOPLATIN [Suspect]
     Active Substance: CARBOPLATIN
     Indication: Pleural mesothelioma
     Route: 065
  6. PEMETREXED [Suspect]
     Active Substance: PEMETREXED
     Indication: Pleural mesothelioma
     Route: 065

REACTIONS (51)
  - Cellulitis [Unknown]
  - Cystitis [Unknown]
  - Empyema [Unknown]
  - Infection [Unknown]
  - Neutropenic sepsis [Unknown]
  - Respiratory tract infection [Unknown]
  - Encephalitis [Unknown]
  - Endocarditis [Unknown]
  - Wound infection [Unknown]
  - Nerve injury [Unknown]
  - Limb injury [Unknown]
  - Wound dehiscence [Unknown]
  - Fluid retention [Unknown]
  - Hyperkalaemia [Unknown]
  - Hypomagnesaemia [Unknown]
  - Hyponatraemia [Unknown]
  - Musculoskeletal chest pain [Unknown]
  - Cerebrovascular accident [Unknown]
  - Peripheral motor neuropathy [Unknown]
  - Peripheral sensory neuropathy [Unknown]
  - Presyncope [Unknown]
  - Seizure [Unknown]
  - Transient ischaemic attack [Unknown]
  - Confusional state [Unknown]
  - Depression [Unknown]
  - Acute kidney injury [Unknown]
  - Renal failure [Unknown]
  - Renal impairment [Unknown]
  - Acute lung injury [Unknown]
  - Atelectasis [Unknown]
  - Bronchopleural fistula [Unknown]
  - Chylothorax [Unknown]
  - Dyspnoea [Unknown]
  - Emphysema [Unknown]
  - Hypoxia [Unknown]
  - Pleural effusion [Unknown]
  - Pneumothorax [Unknown]
  - Pulmonary air leakage [Unknown]
  - Pulmonary embolism [Unknown]
  - Respiratory failure [Unknown]
  - Deep vein thrombosis [Unknown]
  - Embolism [Unknown]
  - Embolism venous [Unknown]
  - Haemorrhage [Unknown]
  - Hypotension [Unknown]
  - Superior vena cava occlusion [Unknown]
  - Hypocalcaemia [Unknown]
  - Insomnia [Unknown]
  - Bell^s palsy [Unknown]
  - Fall [Unknown]
  - Urinary tract infection [Unknown]
